FAERS Safety Report 8204144-8 (Version None)
Quarter: 2012Q1

REPORT INFORMATION
  Report Type: 
  Country: None (occurrence: None)
  Receive Date: 20120313
  Receipt Date: 20120309
  Transmission Date: 20120608
  Serious: Yes (Life-Threatening)
  Sender: FDA-Public Use
  Company Number: DE-B.I. PHARMACEUTICALS,INC./RIDGEFIELD-2012-DE-00569DE

PATIENT
  Sex: Female
  Weight: 90 kg

DRUGS (4)
  1. PRADAXA [Suspect]
     Indication: JOINT ARTHROPLASTY
     Dosage: 220 MG
     Dates: start: 20120223, end: 20120224
  2. DIPYRONE TAB [Concomitant]
     Indication: PAIN
     Dosage: 2 G
     Dates: start: 20120223, end: 20120224
  3. TILIDIN [Concomitant]
     Dosage: 50/4MG
     Dates: start: 20120223
  4. PANTOPRAZOLE [Concomitant]
     Indication: PROPHYLAXIS
     Dosage: 40 MG
     Dates: start: 20120223

REACTIONS (1)
  - RENAL FAILURE ACUTE [None]
